FAERS Safety Report 15913777 (Version 3)
Quarter: 2019Q1

REPORT INFORMATION
  Report Type: Spontaneous
  Country: US (occurrence: US)
  Receive Date: 20190204
  Receipt Date: 20190327
  Transmission Date: 20190417
  Serious: Yes (Other)
  Sender: FDA-Public Use
  Company Number: US-GLAXOSMITHKLINE-US2019013712

PATIENT
  Age: 42 Year
  Sex: Female
  Weight: 90 kg

DRUGS (1)
  1. BENLYSTA [Suspect]
     Active Substance: BELIMUMAB
     Indication: SYSTEMIC LUPUS ERYTHEMATOSUS
     Dosage: UNK UNK, U
     Route: 058
     Dates: start: 201810

REACTIONS (13)
  - Product complaint [Unknown]
  - Gingival bleeding [Not Recovered/Not Resolved]
  - Chest pain [Unknown]
  - Product dose omission [Recovered/Resolved]
  - Contusion [Not Recovered/Not Resolved]
  - Lower respiratory tract congestion [Unknown]
  - Oropharyngeal pain [Unknown]
  - Respiratory tract infection [Unknown]
  - Exposure via skin contact [Unknown]
  - Pain [Unknown]
  - Pruritus generalised [Unknown]
  - Influenza like illness [Unknown]
  - Urinary tract infection [Unknown]

NARRATIVE: CASE EVENT DATE: 201901
